FAERS Safety Report 10174342 (Version 2)
Quarter: 2014Q2

REPORT INFORMATION
  Report Type: Spontaneous
  Country: US (occurrence: US)
  Receive Date: 20140515
  Receipt Date: 20140612
  Transmission Date: 20141212
  Serious: Yes (Life-Threatening, Other)
  Sender: FDA-Public Use
  Company Number: US-ABBVIE-14P-163-1236830-00

PATIENT
  Age: 51 Year
  Sex: Female
  Weight: 46.76 kg

DRUGS (6)
  1. SYNTHROID [Suspect]
     Indication: HYPERTHYROIDISM
     Dates: start: 2014
  2. SYNTHROID [Suspect]
     Indication: AUTOIMMUNE THYROIDITIS
  3. LEVOXYL [Suspect]
     Indication: HYPERTHYROIDISM
  4. LEVOXYL [Suspect]
     Indication: AUTOIMMUNE THYROIDITIS
  5. TIROSINT [Suspect]
     Indication: PRODUCT USED FOR UNKNOWN INDICATION
     Dates: start: 201404
  6. LEVOTHYROXINE [Suspect]
     Indication: PRODUCT USED FOR UNKNOWN INDICATION

REACTIONS (3)
  - Pain [Unknown]
  - Drug ineffective [Unknown]
  - Abdominal pain [Unknown]
